FAERS Safety Report 4715869-0 (Version None)
Quarter: 2005Q3

REPORT INFORMATION
  Report Type: 
  Country: None (occurrence: None)
  Receive Date: 20050713
  Receipt Date: 20050630
  Transmission Date: 20060218
  Serious: Yes (Hospitalization)
  Sender: FDA-Public Use
  Company Number: SUS1-2005-00525

PATIENT
  Age: 36 Year
  Sex: Female
  Weight: 63.5 kg

DRUGS (12)
  1. ADDERALL XR(DEXTROAMPHETAMINE SULFATE, DEXTROAMPHETAMINE SACCHARATE, A [Suspect]
     Indication: ATTENTION DEFICIT/HYPERACTIVITY DISORDER
     Dosage: 20 MG, 1X/DAY;QD
     Dates: start: 20040801
  2. DEPAKOTE [Concomitant]
  3. EFFEXOR [Concomitant]
  4. DOCUSATE (DOCUSATE0 [Concomitant]
  5. PROMETHAZINE [Concomitant]
  6. INDERAL LA [Concomitant]
  7. FAMOTIDINE [Concomitant]
  8. FROVA/01623201/(FROVATRIPTAN) [Concomitant]
  9. FIORINAL (BUTALBITAL, CAFFEINE, ACETYLSALICYLIC ACID) [Concomitant]
  10. IBUPROFEN [Concomitant]
  11. HYDROCODONE W/IBUPROFEN (IBUPROFEN, HYDROCODONE) [Concomitant]
  12. TIZANIDINE HCL [Concomitant]

REACTIONS (5)
  - AGGRESSION [None]
  - ANGER [None]
  - ANXIETY [None]
  - IRRITABILITY [None]
  - PARANOIA [None]
